FAERS Safety Report 6671289-3 (Version None)
Quarter: 2010Q2

REPORT INFORMATION
  Report Type: 
  Country: None (occurrence: None)
  Receive Date: 20100407
  Receipt Date: 20100330
  Transmission Date: 20101027
  Serious: Yes (Other)
  Sender: FDA-Public Use
  Company Number: US-ROCHE-695081

PATIENT
  Sex: Male

DRUGS (2)
  1. PEGASYS [Suspect]
     Dosage: FORM: PRE-FILLED SYRINGE
     Route: 065
     Dates: start: 20100221
  2. RIBAVIRIN [Suspect]
     Route: 065
     Dates: start: 20100221

REACTIONS (3)
  - CATARACT OPERATION [None]
  - HAEMORRHAGE [None]
  - WHITE BLOOD CELL COUNT DECREASED [None]
